FAERS Safety Report 10994438 (Version 2)
Quarter: 2015Q2

REPORT INFORMATION
  Report Type: Report from Study
  Country: US (occurrence: US)
  Receive Date: 20150407
  Receipt Date: 20150415
  Transmission Date: 20150821
  Serious: Yes (Hospitalization, Disabling)
  Sender: FDA-Public Use
  Company Number: US-ACTELION-A-US2015-115572

PATIENT
  Age: 51 Year
  Sex: Female

DRUGS (10)
  1. PROTONIX [Concomitant]
     Active Substance: PANTOPRAZOLE SODIUM
     Dosage: 40 UNK, QD
     Dates: start: 20141205
  2. MS CONTIN [Concomitant]
     Active Substance: MORPHINE SULFATE
  3. TRACLEER [Suspect]
     Active Substance: BOSENTAN\BOSENTAN MONOHYDRATE
     Indication: PULMONARY HYPERTENSION
     Dosage: UNK
     Route: 048
  4. NORVASC [Concomitant]
     Active Substance: AMLODIPINE BESYLATE
     Dosage: 5 UNK, UNK
     Dates: start: 20150210
  5. DILAUDID [Concomitant]
     Active Substance: HYDROMORPHONE HYDROCHLORIDE
  6. PLETAL [Concomitant]
     Active Substance: CILOSTAZOL
     Dosage: 100 UNK, BID
     Dates: start: 20150309
  7. SILDENAFIL. [Concomitant]
     Active Substance: SILDENAFIL
  8. CIALIS [Concomitant]
     Active Substance: TADALAFIL
     Dosage: 5 MG, QD
     Dates: start: 20150309
  9. NEURONTIN [Concomitant]
     Active Substance: GABAPENTIN
  10. DITROPAN [Concomitant]
     Active Substance: OXYBUTYNIN CHLORIDE

REACTIONS (3)
  - Thrombosis [Recovering/Resolving]
  - Peripheral swelling [Recovering/Resolving]
  - Phlebitis [Recovering/Resolving]
